FAERS Safety Report 15208798 (Version 2)
Quarter: 2018Q3

REPORT INFORMATION
  Report Type: Spontaneous
  Country: TR (occurrence: TR)
  Receive Date: 20180727
  Receipt Date: 20180820
  Transmission Date: 20181010
  Serious: Yes (Hospitalization, Other)
  Sender: FDA-Public Use
  Company Number: PHHY2018TR071365

PATIENT
  Age: 9 Month
  Sex: Male

DRUGS (1)
  1. ZOLEDRONATE [Suspect]
     Active Substance: ZOLEDRONIC ACID
     Indication: JUVENILE PAGET^S DISEASE
     Dosage: .05 MG/KG, QD
     Route: 042

REACTIONS (3)
  - Drug administered to patient of inappropriate age [Unknown]
  - Hypocalcaemia [Recovered/Resolved]
  - Product use in unapproved indication [Unknown]
